FAERS Safety Report 5581572-0 (Version None)
Quarter: 2008Q1

REPORT INFORMATION
  Report Type: 
  Country: None (occurrence: None)
  Receive Date: 20080104
  Receipt Date: 20071221
  Transmission Date: 20080703
  Serious: Yes (Other)
  Sender: FDA-Public Use
  Company Number: US-BRACCO-000024

PATIENT
  Sex: Male

DRUGS (1)
  1. PROHANCE [Suspect]
     Indication: DIAGNOSTIC PROCEDURE
     Route: 065
     Dates: start: 20060101, end: 20060101

REACTIONS (1)
  - PARALYSIS [None]
